FAERS Safety Report 8512609-4 (Version None)
Quarter: 2012Q3

REPORT INFORMATION
  Report Type: 
  Country: None (occurrence: None)
  Receive Date: 20120716
  Receipt Date: 20120712
  Transmission Date: 20120928
  Serious: Yes (Other)
  Sender: FDA-Public Use
  Company Number: CN-BAYER-2012-069676

PATIENT
  Age: 65 Year

DRUGS (5)
  1. ASPIRIN [Suspect]
  2. METOPROLOL TARTRATE [Concomitant]
  3. COMPOUND DANSHEN DRIPPING PILLS [Concomitant]
  4. SHEXIANG BAOXIN PILLS (CHINESE TRADITIONAL DRUG) [Concomitant]
  5. ISOSORBIDE MONONITRATE [Concomitant]

REACTIONS (1)
  - CARDIAC FAILURE [None]
